FAERS Safety Report 8789683 (Version 1)
Quarter: 2012Q4

REPORT INFORMATION
  Report Type: Spontaneous
  Country: US (occurrence: None)
  Receive Date: 20120905
  Receipt Date: 20120905
  Transmission Date: 20130627
  Serious: Yes (Hospitalization)
  Sender: FDA-Public Use
  Company Number: 120382

PATIENT
  Age: 64 Year
  Sex: Female
  Weight: 95.94 kg

DRUGS (4)
  1. HALFLYTELY WITH BISACODYL [Suspect]
     Route: 048
     Dates: start: 20120219, end: 20120219
  2. FLUOXETINE [Concomitant]
  3. AMLODIPINE [Concomitant]
  4. ALENDRONATE SODIUM [Concomitant]

REACTIONS (3)
  - Abdominal pain lower [None]
  - Nausea [None]
  - Gait disturbance [None]
